FAERS Safety Report 12276553 (Version 2)
Quarter: 2016Q2

REPORT INFORMATION
  Report Type: Report from Study
  Country: CO (occurrence: CO)
  Receive Date: 20160418
  Receipt Date: 20160617
  Transmission Date: 20160815
  Serious: Yes (Other)
  Sender: FDA-Public Use
  Company Number: CO-ROCHE-1743132

PATIENT

DRUGS (3)
  1. BEVACIZUMAB [Suspect]
     Active Substance: BEVACIZUMAB
     Indication: NON-SMALL CELL LUNG CANCER STAGE IV
     Dosage: UP TO FOUR CYCLES
     Route: 042
  2. PEMETREXED [Suspect]
     Active Substance: PEMETREXED
     Indication: NON-SMALL CELL LUNG CANCER STAGE IV
     Route: 065
  3. CARBOPLATIN. [Suspect]
     Active Substance: CARBOPLATIN
     Indication: NON-SMALL CELL LUNG CANCER STAGE IV
     Dosage: AUC 5.0 MG/ML/MIN
     Route: 065

REACTIONS (20)
  - Thrombocytopenia [Unknown]
  - Fatigue [Unknown]
  - Nephropathy toxic [Unknown]
  - Neutropenia [Unknown]
  - Proteinuria [Unknown]
  - Infection [Unknown]
  - Muscular weakness [Unknown]
  - Anaemia [Unknown]
  - Tracheal disorder [Unknown]
  - Headache [Unknown]
  - Epistaxis [Unknown]
  - Haemoptysis [Unknown]
  - Erythema [Unknown]
  - Embolism [Unknown]
  - Peripheral sensory neuropathy [Unknown]
  - Febrile neutropenia [Unknown]
  - Intestinal perforation [Unknown]
  - Pneumomediastinum [Unknown]
  - Hypertension [Unknown]
  - Venous thrombosis [Unknown]
